FAERS Safety Report 16655463 (Version 1)
Quarter: 2019Q3

REPORT INFORMATION
  Report Type: Spontaneous
  Country: US (occurrence: US)
  Receive Date: 20190801
  Receipt Date: 20190801
  Transmission Date: 20191004
  Serious: No
  Sender: FDA-Public Use
  Company Number: US-ASTRAZENECA-2019SE97141

PATIENT
  Age: 23786 Day
  Sex: Female
  Weight: 95.3 kg

DRUGS (2)
  1. IBRANCE [Suspect]
     Active Substance: PALBOCICLIB
     Indication: BREAST CANCER METASTATIC
     Dosage: 75 MG 2 WEEKS ON AND 2 WEEKS OFF ORALLY
     Route: 048
     Dates: start: 201805
  2. FASLODEX [Suspect]
     Active Substance: FULVESTRANT
     Indication: BREAST CANCER METASTATIC
     Route: 030
     Dates: start: 201805

REACTIONS (3)
  - Wrong technique in product usage process [Unknown]
  - Weight bearing difficulty [Unknown]
  - Joint swelling [Unknown]

NARRATIVE: CASE EVENT DATE: 20190612
